FAERS Safety Report 19729018 (Version 1)
Quarter: 2021Q3

REPORT INFORMATION
  Report Type: Spontaneous
  Country: CN (occurrence: CN)
  Receive Date: 20210820
  Receipt Date: 20210820
  Transmission Date: 20211014
  Serious: Yes (Other)
  Sender: FDA-Public Use
  Company Number: CN-009507513-2108CHN003704

PATIENT
  Age: 92 Year
  Sex: Male
  Weight: 50 kg

DRUGS (2)
  1. TIENAM [Suspect]
     Active Substance: CILASTATIN SODIUM\IMIPENEM
     Indication: INFECTION
     Dosage: 0.5 GRAM, Q8H
     Route: 041
     Dates: start: 20210729, end: 20210801
  2. SODIUM CHLORIDE. [Concomitant]
     Active Substance: SODIUM CHLORIDE
     Indication: MEDICATION DILUTION
     Dosage: 100 MILLILITER, Q8H
     Route: 041
     Dates: start: 20210729, end: 20210811

REACTIONS (4)
  - Anaphylactic shock [Recovered/Resolved]
  - Heart rate decreased [Unknown]
  - Seizure [Unknown]
  - Acidosis [Unknown]

NARRATIVE: CASE EVENT DATE: 20210801
